FAERS Safety Report 16178373 (Version 1)
Quarter: 2019Q2

REPORT INFORMATION
  Report Type: Spontaneous
  Country: CA (occurrence: CA)
  Receive Date: 20190410
  Receipt Date: 20190410
  Transmission Date: 20190711
  Serious: Yes (Hospitalization, Other)
  Sender: FDA-Public Use
  Company Number: CA-ICU MEDICAL, INC.-ICU2019CA00057

PATIENT

DRUGS (1)
  1. 0.9% SODIUM CHLORIDE IRRIGATION [Suspect]
     Active Substance: SODIUM CHLORIDE
     Indication: PRODUCT USED FOR UNKNOWN INDICATION
     Dosage: 900MG/100ML
     Route: 065

REACTIONS (4)
  - Gastrointestinal disorder [Unknown]
  - Intestinal perforation [Unknown]
  - Peritonitis [Unknown]
  - Device issue [Unknown]
